FAERS Safety Report 10428307 (Version 2)
Quarter: 2014Q3

REPORT INFORMATION
  Report Type: Spontaneous
  Country: US (occurrence: None)
  Receive Date: 20140829
  Receipt Date: 20140908
  Transmission Date: 20150326
  Serious: Yes (Hospitalization, Other)
  Sender: FDA-Public Use
  Company Number: 2013US003541

PATIENT
  Age: 24 Year
  Sex: Female
  Weight: 62 kg

DRUGS (2)
  1. ICLUSIG [Suspect]
     Active Substance: PONATINIB
     Route: 048
     Dates: start: 20130611, end: 20140828
  2. ICLUSIG [Suspect]
     Active Substance: PONATINIB
     Indication: ACUTE LYMPHOCYTIC LEUKAEMIA RECURRENT
     Route: 048
     Dates: start: 20130611, end: 20140828

REACTIONS (15)
  - Pneumonia moraxella [None]
  - Graft versus host disease [None]
  - Hypogammaglobulinaemia [None]
  - Parainfluenzae virus infection [None]
  - Asthenia [None]
  - Dysphonia [None]
  - Lethargy [None]
  - Pulmonary mass [None]
  - Transaminases increased [None]
  - Rhinovirus infection [None]
  - Pancytopenia [None]
  - Radiation oesophagitis [None]
  - Laryngitis [None]
  - Gastrointestinal toxicity [None]
  - Febrile neutropenia [None]

NARRATIVE: CASE EVENT DATE: 20030522
